FAERS Safety Report 7770871-X (Version None)
Quarter: 2011Q3

REPORT INFORMATION
  Report Type: 
  Country: None (occurrence: None)
  Receive Date: 20110922
  Receipt Date: 20101115
  Transmission Date: 20111222
  Serious: No
  Sender: FDA-Public Use
  Company Number: US-ASTRAZENECA-2010SE54555

PATIENT
  Sex: Female

DRUGS (9)
  1. LEXAPRO [Concomitant]
  2. AMBIEN [Concomitant]
  3. LAMICTAL [Concomitant]
  4. DILTIAZEM [Concomitant]
     Indication: HYPERTENSION
  5. TRIAMTERENE AND HYDROCHLOROTHIAZIDE [Concomitant]
     Indication: HYPERTENSION
  6. BENTYL [Concomitant]
  7. SEROQUEL [Suspect]
     Route: 048
     Dates: start: 20080101
  8. LAMICTAL [Concomitant]
  9. DIAZEPAM [Concomitant]

REACTIONS (2)
  - HYPOTHYROIDISM [None]
  - OSTEOPOROSIS [None]
